FAERS Safety Report 23096685 (Version 1)
Quarter: 2023Q4

REPORT INFORMATION
  Report Type: Spontaneous
  Country: US (occurrence: None)
  Receive Date: 20231019
  Receipt Date: 20231019
  Transmission Date: 20240110
  Serious: Yes (Hospitalization)
  Sender: FDA-Public Use
  Company Number: None

PATIENT
  Age: 37 Year
  Sex: Male

DRUGS (1)
  1. IOPROMIDE [Suspect]
     Active Substance: IOPROMIDE
     Dosage: OTHER STRENGTH : 370MGL/ML;?
     Dates: end: 20230306

REACTIONS (10)
  - Anaphylactic reaction [None]
  - Cough [None]
  - Hyperhidrosis [None]
  - Dizziness [None]
  - Flushing [None]
  - Hypotension [None]
  - Dyspnoea [None]
  - Sneezing [None]
  - Blindness [None]
  - Vomiting [None]

NARRATIVE: CASE EVENT DATE: 20230303
